FAERS Safety Report 17057002 (Version 1)
Quarter: 2019Q4

REPORT INFORMATION
  Report Type: Spontaneous
  Country: US (occurrence: US)
  Receive Date: 20191121
  Receipt Date: 20191121
  Transmission Date: 20200122
  Serious: No
  Sender: FDA-Public Use
  Company Number: US-KARYOPHARM-2019KPT000808

PATIENT

DRUGS (1)
  1. XPOVIO [Suspect]
     Active Substance: SELINEXOR
     Indication: PRODUCT USED FOR UNKNOWN INDICATION
     Dosage: 60 MG, WEEKLY
     Route: 048
     Dates: start: 20190922

REACTIONS (6)
  - Neutropenia [Unknown]
  - Decreased appetite [Unknown]
  - Thrombocytopenia [Unknown]
  - Vomiting [Unknown]
  - Anaemia [Unknown]
  - Diarrhoea [Unknown]
